FAERS Safety Report 9095704 (Version 2)
Quarter: 2013Q1

REPORT INFORMATION
  Report Type: Spontaneous
  Country: US (occurrence: US)
  Receive Date: 20130219
  Receipt Date: 20130311
  Transmission Date: 20140127
  Serious: Yes (Other)
  Sender: FDA-Public Use
  Company Number: US-FRI-1000042716

PATIENT
  Age: 68 None
  Sex: Male
  Weight: 116 kg

DRUGS (3)
  1. VIIBRYD [Suspect]
     Indication: DEPRESSION
     Dosage: 10 MG
     Route: 048
     Dates: start: 20121219, end: 20130205
  2. ESOMEPRAZOLE [Concomitant]
     Dosage: 40 MG
  3. VITAMIN B-12 [Concomitant]
     Indication: VITAMIN B12 DEFICIENCY
     Dosage: 1000 MCG
     Route: 030

REACTIONS (2)
  - Melaena [Recovered/Resolved]
  - Fatigue [Unknown]
